FAERS Safety Report 5613077-2 (Version None)
Quarter: 2008Q1

REPORT INFORMATION
  Report Type: 
  Country: None (occurrence: None)
  Receive Date: 20080129
  Receipt Date: 20080114
  Transmission Date: 20080703
  Serious: Yes (Death)
  Sender: FDA-Public Use
  Company Number: 2008S1000054

PATIENT
  Age: 84 Year
  Sex: Male

DRUGS (1)
  1. ROXANOL [Suspect]
     Dosage: PO
     Route: 048
     Dates: end: 20060101

REACTIONS (1)
  - MEDICATION ERROR [None]
